FAERS Safety Report 21036083 (Version 1)
Quarter: 2022Q3

REPORT INFORMATION
  Report Type: Spontaneous
  Country: US (occurrence: US)
  Receive Date: 20220701
  Receipt Date: 20220701
  Transmission Date: 20221027
  Serious: No
  Sender: FDA-Public Use
  Company Number: US-THERAPEUTICSMD-2021TMD02914

PATIENT
  Age: 65 Year
  Sex: Female
  Weight: 58.05 kg

DRUGS (3)
  1. IMVEXXY [Suspect]
     Active Substance: ESTRADIOL
     Indication: Vulvovaginal dryness
     Dosage: STARTER PACK
     Route: 067
     Dates: start: 202110, end: 2021
  2. IMVEXXY [Suspect]
     Active Substance: ESTRADIOL
     Dosage: 10 ?G, 2X/WEEK
     Route: 067
     Dates: start: 2021, end: 2021
  3. UNSPECIFIED PRODUCTS FOR HER STOMACH [Concomitant]

REACTIONS (2)
  - Vulvovaginal pruritus [Recovered/Resolved]
  - Vaginal haemorrhage [Recovered/Resolved]

NARRATIVE: CASE EVENT DATE: 20211001
